FAERS Safety Report 10265004 (Version 2)
Quarter: 2014Q3

REPORT INFORMATION
  Report Type: Spontaneous
  Country: DE (occurrence: DE)
  Receive Date: 20140627
  Receipt Date: 20140908
  Transmission Date: 20150326
  Serious: Yes (Other)
  Sender: FDA-Public Use
  Company Number: DE-TEVA-489087GER

PATIENT
  Sex: Male
  Weight: 83 kg

DRUGS (13)
  1. TAXILAN [Concomitant]
     Active Substance: PERAZINE
     Indication: DYSTHYMIC DISORDER
     Dosage: 125 MILLIGRAM DAILY;
     Route: 048
  2. VITAMIN D3 [Concomitant]
     Active Substance: CHOLECALCIFEROL
     Dosage: 5000 IU (INTERNATIONAL UNIT) DAILY;
     Dates: start: 201405
  3. IBU [Suspect]
     Active Substance: IBUPROFEN
     Indication: MIGRAINE
  4. IBU [Suspect]
     Active Substance: IBUPROFEN
     Indication: ANKYLOSING SPONDYLITIS
     Dosage: 3-4 TABLETS WEEKLY SINCE MORE THAN 6 YEARS
     Route: 048
  5. ZINC [Concomitant]
     Active Substance: ZINC\ZINC CHLORIDE
     Indication: ZINC DEFICIENCY
     Dosage: 12.5 MILLIGRAM DAILY;
     Route: 048
     Dates: start: 201405
  6. IBU [Suspect]
     Active Substance: IBUPROFEN
     Indication: BACK PAIN
  7. AZUPROSTAT [Concomitant]
     Indication: BENIGN PROSTATIC HYPERPLASIA
     Dosage: 130 MILLIGRAM DAILY;
     Route: 048
     Dates: start: 2011
  8. CALCIUM [Concomitant]
     Active Substance: CALCIUM
     Dosage: 600-750 MG DAILY
     Route: 048
     Dates: start: 201404
  9. VALIUM [Concomitant]
     Active Substance: DIAZEPAM
     Dosage: 1-3 TIMES MONTHLY
     Dates: start: 1979
  10. IBU [Suspect]
     Active Substance: IBUPROFEN
     Indication: HEADACHE
  11. MAGNESIUM [Concomitant]
     Active Substance: MAGNESIUM
     Indication: MIGRAINE
     Dosage: 300 MILLIGRAM DAILY;
     Route: 048
     Dates: start: 2011
  12. NASIC [Concomitant]
     Active Substance: DEXPANTHENOL\XYLOMETAZOLINE HYDROCHLORIDE
     Indication: NASAL CONGESTION
     Dosage: 3-4 TIMES WEEKLY SINCE SEVERAL YEARS
     Route: 045
  13. L-THYROXIN 100 [Concomitant]
     Dosage: SINCE MORE THAN 30 YEARS

REACTIONS (2)
  - Bone marrow oedema [Not Recovered/Not Resolved]
  - Osteonecrosis [Not Recovered/Not Resolved]

NARRATIVE: CASE EVENT DATE: 2011
